FAERS Safety Report 7000627-7 (Version None)
Quarter: 2010Q3

REPORT INFORMATION
  Report Type: 
  Country: None (occurrence: None)
  Receive Date: 20100920
  Receipt Date: 20100914
  Transmission Date: 20110219
  Serious: Yes (Hospitalization)
  Sender: FDA-Public Use
  Company Number: DE-SANOFI-AVENTIS-2010SA055344

PATIENT
  Weight: 93 kg

DRUGS (3)
  1. MULTAQ [Suspect]
     Route: 048
     Dates: start: 20100101, end: 20100101
  2. PLATELETS [Concomitant]
     Indication: PROPHYLAXIS
  3. VIT K ANTAGONISTS [Concomitant]
     Indication: PROPHYLAXIS

REACTIONS (1)
  - CARDIAC FAILURE [None]
